FAERS Safety Report 5701734-9 (Version None)
Quarter: 2008Q2

REPORT INFORMATION
  Report Type: 
  Country: None (occurrence: None)
  Receive Date: 20080411
  Receipt Date: 20080331
  Transmission Date: 20081010
  Serious: Yes (Other)
  Sender: FDA-Public Use
  Company Number: CA-JNJFOC-20080400575

PATIENT
  Sex: Male

DRUGS (2)
  1. REMICADE [Suspect]
     Indication: DRUG USE FOR UNKNOWN INDICATION
     Route: 042
  2. BENADRYL [Suspect]
     Indication: INFUSION RELATED REACTION

REACTIONS (10)
  - BLOOD PRESSURE DECREASED [None]
  - COUGH [None]
  - HEADACHE [None]
  - HEART RATE INCREASED [None]
  - HYPERSOMNIA [None]
  - HYPOAESTHESIA [None]
  - INFUSION RELATED REACTION [None]
  - JOINT SWELLING [None]
  - PAIN [None]
  - SWELLING FACE [None]
